FAERS Safety Report 14124265 (Version 2)
Quarter: 2017Q4

REPORT INFORMATION
  Report Type: Spontaneous
  Country: JP (occurrence: JP)
  Receive Date: 20171025
  Receipt Date: 20171025
  Transmission Date: 20180321
  Serious: Yes (Other)
  Sender: FDA-Public Use
  Company Number: PHHY2017JP156279

PATIENT
  Age: 55 Year
  Sex: Female

DRUGS (6)
  1. LETROZOLE. [Suspect]
     Active Substance: LETROZOLE
     Indication: NEUROENDOCRINE TUMOUR
  2. ANASTROZOLE. [Suspect]
     Active Substance: ANASTROZOLE
     Indication: NEUROENDOCRINE TUMOUR
  3. LETROZOLE. [Suspect]
     Active Substance: LETROZOLE
     Indication: BREAST CANCER
     Route: 065
  4. ZOLEDRONIC ACID [Suspect]
     Active Substance: ZOLEDRONIC ACID
     Indication: NEUROENDOCRINE TUMOUR
  5. ANASTROZOLE. [Suspect]
     Active Substance: ANASTROZOLE
     Indication: BREAST CANCER
     Route: 065
  6. ZOLEDRONIC ACID [Suspect]
     Active Substance: ZOLEDRONIC ACID
     Indication: METASTASES TO BONE
     Route: 065

REACTIONS (8)
  - Faeces discoloured [Unknown]
  - Metastases to pancreas [Unknown]
  - Metastases to lymph nodes [Unknown]
  - Vomiting [Unknown]
  - Jaundice cholestatic [Unknown]
  - Chromaturia [Unknown]
  - Metastases to bone [Unknown]
  - Malignant neoplasm progression [Unknown]
